FAERS Safety Report 4316760-4 (Version None)
Quarter: 2004Q1

REPORT INFORMATION
  Report Type: 
  Country: None (occurrence: None)
  Receive Date: 20040311
  Receipt Date: 20040226
  Transmission Date: 20041129
  Serious: Yes (Hospitalization, Other)
  Sender: FDA-Public Use
  Company Number: HQWYE428727FEB04

PATIENT
  Age: 59 Year
  Sex: Male

DRUGS (2)
  1. VANCOLED [Suspect]
     Indication: STAPHYLOCOCCAL INFECTION
     Dosage: 1 G 1X PER 72 HR, INTRAVENOUS; SEE IMAGE
     Route: 042
     Dates: start: 19970201, end: 19970101
  2. VANCOLED [Suspect]
     Indication: STAPHYLOCOCCAL INFECTION
     Dosage: 1 G 1X PER 72 HR, INTRAVENOUS; SEE IMAGE
     Route: 042
     Dates: start: 19970701, end: 19970821

REACTIONS (5)
  - ABDOMINAL PAIN [None]
  - CULTURE POSITIVE [None]
  - PATHOGEN RESISTANCE [None]
  - PERITONEAL FLUID ANALYSIS ABNORMAL [None]
  - STAPHYLOCOCCAL INFECTION [None]
